FAERS Safety Report 8301268-1 (Version None)
Quarter: 2012Q2

REPORT INFORMATION
  Report Type: 
  Country: None (occurrence: None)
  Receive Date: 20120420
  Receipt Date: 20120419
  Transmission Date: 20120825
  Serious: Yes (Life-Threatening, Hospitalization)
  Sender: FDA-Public Use
  Company Number: US-B.I. PHARMACEUTICALS,INC./RIDGEFIELD-2012-BP-06020BP

PATIENT
  Sex: Female
  Weight: 89.36 kg

DRUGS (17)
  1. LEVOTHYROXINE SODIUM [Concomitant]
     Dosage: 88 MCG
     Route: 048
  2. ADVAIR DISKUS 100/50 [Concomitant]
     Dosage: 1 PUF
     Route: 055
  3. ALBUTEROL SULFATE [Concomitant]
     Route: 055
  4. MIRTAZAPINE [Concomitant]
     Dosage: 30 MG
     Route: 048
  5. PRADAXA [Suspect]
     Indication: ATRIAL FIBRILLATION
     Dates: start: 20111025, end: 20120313
  6. COREG [Concomitant]
     Dosage: 50 MG
     Route: 048
  7. LEXAPRO [Concomitant]
     Dosage: 10 MG
     Route: 048
  8. GLIPIZIDE [Concomitant]
     Indication: TYPE 2 DIABETES MELLITUS
     Dosage: 5 MG
     Route: 048
     Dates: start: 20120301
  9. SPIRONOLACTONE [Concomitant]
     Indication: CARDIAC FAILURE CONGESTIVE
     Dosage: 25 MG
     Route: 048
     Dates: start: 20120301
  10. TRAMADOL HCL [Concomitant]
     Dosage: 200 MG
     Route: 048
  11. ACYCLOVIR [Concomitant]
     Route: 061
  12. CARVEDILOL [Concomitant]
     Indication: CARDIAC FAILURE CONGESTIVE
     Route: 048
     Dates: start: 20120401
  13. FUROSEMIDE [Concomitant]
     Dosage: 40 MG
     Route: 048
  14. MAGNESIUM OXIDE [Concomitant]
     Dosage: 400 MG
     Route: 048
     Dates: start: 20120301
  15. TRAMADOL HYDROCHLORIDE AND ACETAMINOPHEN [Concomitant]
     Dates: start: 20120301
  16. PANTOPRAZOLE SODIUM [Concomitant]
     Dosage: 40 MG
     Route: 048
  17. GABAPENTIN [Concomitant]
     Dosage: 300 MG
     Route: 048

REACTIONS (1)
  - LOWER GASTROINTESTINAL HAEMORRHAGE [None]
